FAERS Safety Report 6653161-8 (Version None)
Quarter: 2010Q1

REPORT INFORMATION
  Report Type: 
  Country: None (occurrence: None)
  Receive Date: 20100326
  Receipt Date: 20100324
  Transmission Date: 20100710
  Serious: Yes (Other)
  Sender: FDA-Public Use
  Company Number: CHPA2010PT05640

PATIENT
  Sex: Female
  Weight: 69 kg

DRUGS (1)
  1. DENAVIR (NCH) [Suspect]
     Indication: ORAL HERPES
     Dosage: UNK, UNK
     Route: 061
     Dates: start: 20100120, end: 20100121

REACTIONS (2)
  - APPLICATION SITE BURN [None]
  - HYPERSENSITIVITY [None]
